FAERS Safety Report 9382212 (Version 1)
Quarter: 2013Q3

REPORT INFORMATION
  Report Type: Spontaneous
  Country: US (occurrence: US)
  Receive Date: 20130703
  Receipt Date: 20130703
  Transmission Date: 20140515
  Serious: Yes (Other)
  Sender: FDA-Public Use
  Company Number: US-ABBOTT-13P-163-1112886-00

PATIENT
  Age: 63 Year
  Sex: Female
  Weight: 86.26 kg

DRUGS (22)
  1. HUMIRA [Suspect]
     Indication: RHEUMATOID ARTHRITIS
     Dosage: UNKNOWN FREQUENCY OF MEDICATION.
     Route: 058
     Dates: start: 2006, end: 2010
  2. ENBREL [Suspect]
     Indication: RHEUMATOID ARTHRITIS
     Dates: start: 2010, end: 2013
  3. ZOLOFT [Concomitant]
     Indication: PRODUCT USED FOR UNKNOWN INDICATION
  4. PROVENTIL [Concomitant]
     Indication: PRODUCT USED FOR UNKNOWN INDICATION
     Route: 055
  5. FOLIC ACID [Concomitant]
     Indication: PRODUCT USED FOR UNKNOWN INDICATION
  6. ADVAIR [Concomitant]
     Indication: PRODUCT USED FOR UNKNOWN INDICATION
  7. PREDNISONE [Concomitant]
     Indication: PRODUCT USED FOR UNKNOWN INDICATION
  8. METHOTREXATE [Concomitant]
     Indication: PRODUCT USED FOR UNKNOWN INDICATION
  9. FISH OIL [Concomitant]
     Indication: PRODUCT USED FOR UNKNOWN INDICATION
  10. ZOCOR [Concomitant]
     Indication: PRODUCT USED FOR UNKNOWN INDICATION
  11. IBUPROFEN [Concomitant]
     Indication: PRODUCT USED FOR UNKNOWN INDICATION
  12. PRILOSEC [Concomitant]
     Indication: PRODUCT USED FOR UNKNOWN INDICATION
  13. ACIDOPHILUS [Concomitant]
     Indication: PRODUCT USED FOR UNKNOWN INDICATION
  14. VITAMIN D3 [Concomitant]
     Indication: PRODUCT USED FOR UNKNOWN INDICATION
  15. ASPIRIN [Concomitant]
     Indication: PRODUCT USED FOR UNKNOWN INDICATION
  16. MULTIVITAMINS [Concomitant]
     Indication: PRODUCT USED FOR UNKNOWN INDICATION
  17. POTASSIUM [Concomitant]
     Indication: PRODUCT USED FOR UNKNOWN INDICATION
  18. VITAMIN C [Concomitant]
     Indication: PRODUCT USED FOR UNKNOWN INDICATION
  19. VITAMIN E [Concomitant]
     Indication: PRODUCT USED FOR UNKNOWN INDICATION
  20. ZYRTEC [Concomitant]
     Indication: PRODUCT USED FOR UNKNOWN INDICATION
  21. ZYRTEC [Concomitant]
     Indication: PRODUCT USED FOR UNKNOWN INDICATION
  22. OXYGEN [Concomitant]
     Indication: PRODUCT USED FOR UNKNOWN INDICATION

REACTIONS (3)
  - Pulmonary mass [Not Recovered/Not Resolved]
  - Melanocytic naevus [Recovered/Resolved]
  - Malignant melanoma [Not Recovered/Not Resolved]
